FAERS Safety Report 5901147-0 (Version None)
Quarter: 2008Q3

REPORT INFORMATION
  Report Type: 
  Country: None (occurrence: None)
  Receive Date: 20080924
  Receipt Date: 20080910
  Transmission Date: 20090109
  Serious: Yes (Other)
  Sender: FDA-Public Use
  Company Number: 2008S1016636

PATIENT
  Age: 64 Year
  Sex: Female

DRUGS (2)
  1. ALENDRONIC ACID (ALENDRONIC ACID) [Suspect]
     Indication: OSTEOPOROSIS
     Dosage: 70 MG; QIW
     Dates: start: 20070301, end: 20070401
  2. ACTONEL [Concomitant]

REACTIONS (2)
  - LARYNGEAL OEDEMA [None]
  - VOCAL CORD DISORDER [None]
